FAERS Safety Report 6718643-9 (Version None)
Quarter: 2010Q2

REPORT INFORMATION
  Report Type: 
  Country: None (occurrence: None)
  Receive Date: 20100510
  Receipt Date: 20100426
  Transmission Date: 20101027
  Serious: Yes (Hospitalization, Disabling)
  Sender: FDA-Public Use
  Company Number: FR-GENENTECH-301277

PATIENT
  Sex: Male

DRUGS (14)
  1. MABTHERA [Suspect]
     Dosage: 4500 MG, UNK
     Route: 042
     Dates: start: 20070417, end: 20070808
  2. BLEOMYCIN SULFATE [Suspect]
     Dosage: 80 MG, UNK
     Route: 042
     Dates: start: 20070417, end: 20070530
  3. DOXORUBICIN HCL [Suspect]
     Dosage: 600 MG, UNK
     Route: 042
     Dates: start: 20070417, end: 20070530
  4. ENDOXAN [Suspect]
     Dosage: 9600 MG, UNK
     Route: 042
     Dates: start: 20070417, end: 20070530
  5. ELDISINE [Suspect]
     Dosage: 32 MG, UNK
     Route: 042
     Dates: start: 20070417, end: 20070530
  6. METHOTREXATE [Suspect]
     Dosage: 11970 MG, UNK
     Route: 042
     Dates: start: 20070627, end: 20070711
  7. ETOPOPHOS PRESERVATIVE FREE [Suspect]
     Dosage: 1200 MG, UNK
     Route: 042
     Dates: start: 20070725, end: 20070808
  8. HOLOXAN [Suspect]
     Dosage: LYOPHILISATE FOR INJECTABLE SOLUTION, IN 2 CYCLES
     Route: 042
     Dates: start: 20070725, end: 20070808
  9. BICNU [Suspect]
     Dosage: 600 MG, UNK
     Route: 042
     Dates: start: 20070829, end: 20070901
  10. CYTARABINE [Suspect]
     Dosage: 1600 MG, UNK
     Route: 042
     Dates: start: 20070829, end: 20070901
  11. ETOPOSIDE [Suspect]
     Dosage: 1600 MG, UNK
     Route: 042
     Dates: start: 20070829, end: 20070901
  12. ALKERAN [Suspect]
     Dosage: 280 MG, UNK
     Route: 042
     Dates: start: 20070829, end: 20070901
  13. ADRIAMYCIN PFS [Concomitant]
     Indication: DRUG USE FOR UNKNOWN INDICATION
     Dosage: UNK
  14. PREDNISONE TAB [Concomitant]
     Indication: DRUG USE FOR UNKNOWN INDICATION
     Dosage: UNK

REACTIONS (1)
  - PULMONARY FIBROSIS [None]
